FAERS Safety Report 6082603-4 (Version None)
Quarter: 2009Q1

REPORT INFORMATION
  Report Type: 
  Country: None (occurrence: None)
  Receive Date: 20090218
  Receipt Date: 20090209
  Transmission Date: 20090719
  Serious: Yes (Hospitalization)
  Sender: FDA-Public Use
  Company Number: DE-ABBOTT-09P-062-0502514-00

PATIENT
  Age: 51 Year
  Sex: Male

DRUGS (10)
  1. ERGENYL [Suspect]
     Indication: DRUG USE FOR UNKNOWN INDICATION
     Route: 048
     Dates: start: 20060508, end: 20060509
  2. ERGENYL [Suspect]
     Route: 048
     Dates: start: 20060510
  3. ERGENYL [Suspect]
     Route: 048
     Dates: start: 20060511, end: 20060529
  4. ERGENYL [Suspect]
     Route: 048
     Dates: start: 20060530
  5. ERGENYL [Suspect]
  6. ERGENYL [Suspect]
  7. ERGENYL [Suspect]
  8. FLUPENTIXOL [Suspect]
     Indication: DRUG USE FOR UNKNOWN INDICATION
     Route: 048
  9. FLUPENTIXOL DECANOATE [Suspect]
     Indication: DRUG USE FOR UNKNOWN INDICATION
     Route: 030
  10. NEUROCIL [Suspect]
     Indication: DRUG USE FOR UNKNOWN INDICATION
     Route: 048
     Dates: start: 20060503, end: 20060629

REACTIONS (3)
  - BLOOD OSMOLARITY DECREASED [None]
  - HYPOKALAEMIA [None]
  - HYPONATRAEMIA [None]
